FAERS Safety Report 9403147 (Version 2)
Quarter: 2013Q3

REPORT INFORMATION
  Report Type: Spontaneous
  Country: US (occurrence: US)
  Receive Date: 20130712
  Receipt Date: 20130830
  Transmission Date: 20140515
  Serious: Yes (Hospitalization)
  Sender: FDA-Public Use
  Company Number: DSU-2013-03884

PATIENT
  Age: 68 Year
  Sex: Female
  Weight: 90.27 kg

DRUGS (4)
  1. AZOR [Suspect]
     Indication: HYPERTENSION
     Route: 048
  2. DIGOXIN [Suspect]
     Indication: HEART RATE INCREASED
     Route: 048
     Dates: start: 201303, end: 201303
  3. SOTALOL [Suspect]
     Indication: HEART RATE INCREASED
     Route: 048
     Dates: start: 201303, end: 201303
  4. VITAMINS (VITAMINS/90003601/) [Concomitant]

REACTIONS (6)
  - Heart rate increased [None]
  - Heart rate abnormal [None]
  - Dizziness [None]
  - Dysphagia [None]
  - Sensation of foreign body [None]
  - Throat tightness [None]
